FAERS Safety Report 17300797 (Version 2)
Quarter: 2020Q1

REPORT INFORMATION
  Report Type: Spontaneous
  Country: UZ (occurrence: UZ)
  Receive Date: 20200122
  Receipt Date: 20200124
  Transmission Date: 20200409
  Serious: Yes (Death, Hospitalization)
  Sender: FDA-Public Use
  Company Number: UZ-JNJFOC-20200119640

PATIENT
  Age: 43 Year
  Sex: Female
  Weight: 55 kg

DRUGS (28)
  1. BEDAQUILINE [Suspect]
     Active Substance: BEDAQUILINE
     Indication: PULMONARY TUBERCULOSIS
     Route: 048
     Dates: start: 20191009, end: 20200105
  2. CAPREOMYCIN [Suspect]
     Active Substance: CAPREOMYCIN
     Indication: RESPIRATORY FAILURE
  3. MOXIFLOXACIN. [Suspect]
     Active Substance: MOXIFLOXACIN
     Indication: CARDIAC FAILURE
  4. LINEZOLID. [Suspect]
     Active Substance: LINEZOLID
     Indication: CARDIAC FAILURE
  5. CYCLOSERINE. [Suspect]
     Active Substance: CYCLOSERINE
     Indication: CARDIAC FAILURE
  6. PYRAZINAMIDE. [Suspect]
     Active Substance: PYRAZINAMIDE
     Indication: PULMONARY TUBERCULOSIS
     Route: 048
     Dates: start: 20191009, end: 20200105
  7. PYRAZINAMIDE. [Suspect]
     Active Substance: PYRAZINAMIDE
     Indication: CARDIAC FAILURE
  8. PYRAZINAMIDE. [Suspect]
     Active Substance: PYRAZINAMIDE
     Indication: CACHEXIA
  9. CYCLOSERINE. [Suspect]
     Active Substance: CYCLOSERINE
     Indication: RESPIRATORY FAILURE
  10. CAPREOMYCIN [Suspect]
     Active Substance: CAPREOMYCIN
     Indication: CACHEXIA
  11. MOXIFLOXACIN. [Suspect]
     Active Substance: MOXIFLOXACIN
     Indication: RESPIRATORY FAILURE
  12. MOXIFLOXACIN. [Suspect]
     Active Substance: MOXIFLOXACIN
     Indication: CACHEXIA
  13. LINEZOLID. [Suspect]
     Active Substance: LINEZOLID
     Indication: CACHEXIA
  14. CLOFAZIMINE [Suspect]
     Active Substance: CLOFAZIMINE
     Indication: CARDIAC FAILURE
  15. CAPREOMYCIN [Suspect]
     Active Substance: CAPREOMYCIN
     Indication: CARDIAC FAILURE
  16. MOXIFLOXACIN. [Suspect]
     Active Substance: MOXIFLOXACIN
     Indication: PULMONARY TUBERCULOSIS
     Route: 048
     Dates: start: 20191009, end: 20200105
  17. BEDAQUILINE [Suspect]
     Active Substance: BEDAQUILINE
     Indication: CACHEXIA
  18. PYRAZINAMIDE. [Suspect]
     Active Substance: PYRAZINAMIDE
     Indication: RESPIRATORY FAILURE
  19. CYCLOSERINE. [Suspect]
     Active Substance: CYCLOSERINE
     Indication: PULMONARY TUBERCULOSIS
     Dates: start: 20190910, end: 20200105
  20. CLOFAZIMINE [Suspect]
     Active Substance: CLOFAZIMINE
     Indication: PULMONARY TUBERCULOSIS
     Dates: start: 20190910, end: 20200105
  21. CLOFAZIMINE [Suspect]
     Active Substance: CLOFAZIMINE
     Indication: CACHEXIA
  22. BEDAQUILINE [Suspect]
     Active Substance: BEDAQUILINE
     Indication: RESPIRATORY FAILURE
  23. CAPREOMYCIN [Suspect]
     Active Substance: CAPREOMYCIN
     Indication: PULMONARY TUBERCULOSIS
     Dates: start: 20191009, end: 20200105
  24. LINEZOLID. [Suspect]
     Active Substance: LINEZOLID
     Indication: PULMONARY TUBERCULOSIS
     Route: 048
     Dates: start: 20191009, end: 20200105
  25. LINEZOLID. [Suspect]
     Active Substance: LINEZOLID
     Indication: RESPIRATORY FAILURE
  26. BEDAQUILINE [Suspect]
     Active Substance: BEDAQUILINE
     Indication: CARDIAC FAILURE
  27. CYCLOSERINE. [Suspect]
     Active Substance: CYCLOSERINE
     Indication: CACHEXIA
  28. CLOFAZIMINE [Suspect]
     Active Substance: CLOFAZIMINE
     Indication: RESPIRATORY FAILURE

REACTIONS (1)
  - Respiratory distress [Fatal]

NARRATIVE: CASE EVENT DATE: 20200105
